FAERS Safety Report 24705428 (Version 1)
Quarter: 2024Q4

REPORT INFORMATION
  Report Type: Spontaneous
  Country: GB (occurrence: GB)
  Receive Date: 20241206
  Receipt Date: 20241206
  Transmission Date: 20250115
  Serious: Yes (Other)
  Sender: AUROBINDO
  Company Number: GB-MHRA-EMIS-1982-5091843d-3581-4689-86f7-ee17fbc66bca

PATIENT
  Age: 66 Year
  Sex: Male
  Weight: 93 kg

DRUGS (11)
  1. AMOXICILLIN\CLAVULANATE POTASSIUM [Suspect]
     Active Substance: AMOXICILLIN\CLAVULANATE POTASSIUM
     Indication: Product used for unknown indication
     Dosage: UNK
     Route: 065
     Dates: start: 20241011
  2. CODEINE [Concomitant]
     Active Substance: CODEINE
     Indication: Product used for unknown indication
     Dosage: UNK [ONE OR TWO TO BE TAKEN EVERY FOUR -SIX HOURS WHEN NECESSAR]
     Route: 065
     Dates: start: 20241015
  3. CLOPIDOGREL [Concomitant]
     Active Substance: CLOPIDOGREL BISULFATE
     Indication: Product used for unknown indication
     Dosage: 1 DOSAGE FORM, ONCE A DAY [ONE TO BE TAKEN EACH DAY IN THE MORNING]
     Route: 065
     Dates: start: 20241021
  4. FLUCLOXACILLIN [Concomitant]
     Active Substance: FLUCLOXACILLIN
     Indication: Product used for unknown indication
     Dosage: 1 DOSAGE FORM, FOUR TIMES/DAY [ONE TO BE TAKEN FOUR TIMES A DAY]
     Route: 065
     Dates: start: 20240917, end: 20241016
  5. FLUCLOXACILLIN [Concomitant]
     Active Substance: FLUCLOXACILLIN
     Dosage: 2 DOSAGE FORM, FOUR TIMES/DAY [2 TO BE TAKEN X 4 PER DAY FOR A TOTAL OF 6 WEEKS FROM24/9/24]
     Route: 065
     Dates: start: 20240924
  6. HYDROXOCOBALAMIN [Concomitant]
     Active Substance: HYDROXOCOBALAMIN
     Indication: Adverse drug reaction
     Dosage: UNK UNK, AS DIRECTED
     Route: 065
     Dates: start: 20240918
  7. POLYETHYLENE GLYCOLS [Concomitant]
     Active Substance: POLYETHYLENE GLYCOLS
     Indication: Product used for unknown indication
     Dosage: 2 DOSAGE FORM, ONCE A DAY [TWO SACHETS TO BE TAKEN EACH DAY]
     Route: 065
     Dates: start: 20241018
  8. MORPHINE SULFATE [Concomitant]
     Active Substance: MORPHINE SULFATE
     Indication: Product used for unknown indication
     Dosage: 100 MILLILITER [2.5ML-5ML TO BE TAKEN DURING DRESSINGS]
     Route: 065
     Dates: start: 20241018
  9. POVIDONE-IODINE [Concomitant]
     Active Substance: POVIDONE-IODINE
     Indication: Product used for unknown indication
     Dosage: UNK UNK, AS DIRECTED
     Route: 065
     Dates: start: 20240926
  10. PROMETHAZINE [Concomitant]
     Active Substance: PROMETHAZINE HYDROCHLORIDE
     Indication: Product used for unknown indication
     Dosage: 1 DOSAGE FORM, TWO TIMES A DAY [ONE TO BE TAKEN TWICE A DAY]
     Route: 065
  11. VANCOMYCIN [Concomitant]
     Active Substance: VANCOMYCIN
     Indication: Product used for unknown indication
     Dosage: 1 DOSAGE FORM, FOUR TIMES/DAY [ONE TO BE TAKEN EVERY SIX HOURS]
     Route: 065

REACTIONS (1)
  - Clostridium difficile infection [Unknown]
